FAERS Safety Report 16131851 (Version 1)
Quarter: 2019Q1

REPORT INFORMATION
  Report Type: Report from Study
  Country: None (occurrence: US)
  Receive Date: 20190329
  Receipt Date: 20190329
  Transmission Date: 20190418
  Serious: Yes (Other)
  Sender: FDA-Public Use
  Company Number: US-ABBVIE-18K-163-2506141-00

PATIENT
  Age: 78 Year
  Sex: Male
  Weight: 72.64 kg

DRUGS (3)
  1. HUMIRA [Suspect]
     Active Substance: ADALIMUMAB
     Indication: CROHN^S DISEASE
     Route: 058
     Dates: start: 201901
  2. HUMIRA [Suspect]
     Active Substance: ADALIMUMAB
     Indication: CROHN^S DISEASE
     Route: 058
     Dates: start: 2016, end: 2018
  3. HUMIRA [Suspect]
     Active Substance: ADALIMUMAB
     Route: 058
     Dates: start: 20181109

REACTIONS (21)
  - Respiratory tract infection viral [Recovered/Resolved]
  - Gastrointestinal obstruction [Unknown]
  - Food poisoning [Not Recovered/Not Resolved]
  - Respiratory tract infection bacterial [Recovered/Resolved]
  - Gastrointestinal sounds abnormal [Unknown]
  - Rash papular [Unknown]
  - Crohn^s disease [Recovered/Resolved]
  - Crohn^s disease [Not Recovered/Not Resolved]
  - Anastomotic complication [Unknown]
  - Dyschezia [Recovered/Resolved]
  - Diarrhoea [Unknown]
  - Chest discomfort [Recovered/Resolved]
  - Post procedural constipation [Unknown]
  - Injection site pain [Recovered/Resolved]
  - Abdominal pain [Recovered/Resolved]
  - Meningitis [Unknown]
  - Dysphonia [Not Recovered/Not Resolved]
  - Abdominal distension [Unknown]
  - Crohn^s disease [Recovered/Resolved]
  - Lower respiratory tract infection [Recovered/Resolved]
  - Drug effect incomplete [Unknown]

NARRATIVE: CASE EVENT DATE: 201808
